FAERS Safety Report 7398534-3 (Version None)
Quarter: 2011Q2

REPORT INFORMATION
  Report Type: 
  Country: None (occurrence: None)
  Receive Date: 20110407
  Receipt Date: 20110329
  Transmission Date: 20111010
  Serious: No
  Sender: FDA-Public Use
  Company Number: US-BIOGENIDEC-2011BI006683

PATIENT
  Sex: Male

DRUGS (2)
  1. VALIUM [Concomitant]
     Indication: STRESS
  2. TYSABRI [Suspect]
     Indication: MULTIPLE SCLEROSIS
     Route: 042
     Dates: start: 20110117

REACTIONS (7)
  - HYPOAESTHESIA [None]
  - HEADACHE [None]
  - SPEECH DISORDER [None]
  - PAIN [None]
  - FATIGUE [None]
  - MUSCLE SPASMS [None]
  - MICTURITION URGENCY [None]
